FAERS Safety Report 7202766-4 (Version None)
Quarter: 2010Q4

REPORT INFORMATION
  Report Type: 
  Country: None (occurrence: None)
  Receive Date: 20101220
  Receipt Date: 20101213
  Transmission Date: 20110411
  Serious: Yes (Death, Congenital Anomaly)
  Sender: FDA-Public Use
  Company Number: WAES 1007USA01498B1

PATIENT
  Sex: Male
  Weight: 0.827 kg

DRUGS (3)
  1. ISENTRESS [Suspect]
     Indication: ACQUIRED IMMUNODEFICIENCY SYNDROME
     Dosage: 800
     Dates: end: 20100323
  2. COMBIVIR [Concomitant]
  3. EMTRIVA [Concomitant]

REACTIONS (6)
  - ALPHA 1 FOETOPROTEIN INCREASED [None]
  - DRUG EXPOSURE DURING PREGNANCY [None]
  - FOETAL DISTRESS SYNDROME [None]
  - HYPOTENSION [None]
  - STILLBIRTH [None]
  - UROSEPSIS [None]
